FAERS Safety Report 21246940 (Version 1)
Quarter: 2022Q3

REPORT INFORMATION
  Report Type: Report from Study
  Country: US (occurrence: US)
  Receive Date: 20220824
  Receipt Date: 20220824
  Transmission Date: 20221027
  Serious: Yes (Other)
  Sender: FDA-Public Use
  Company Number: US-GILEAD-2022-0594283

PATIENT
  Sex: Female

DRUGS (27)
  1. AZTREONAM LYSINE [Suspect]
     Active Substance: AZTREONAM LYSINE
     Indication: Pseudomonas infection
     Dosage: 1 ML, TID 2WEEKS ON/2 WEEKS OFF
     Route: 055
  2. BETHKIS [Concomitant]
     Active Substance: TOBRAMYCIN
  3. BACTROBAN [Concomitant]
     Active Substance: MUPIROCIN\MUPIROCIN CALCIUM
  4. NYSTATIN [Concomitant]
     Active Substance: NYSTATIN
  5. TYLENOL [Concomitant]
     Active Substance: ACETAMINOPHEN
  6. TRANSDERM SCOP [Concomitant]
     Active Substance: SCOPOLAMINE
  7. NOVOLOG [Concomitant]
     Active Substance: INSULIN ASPART
  8. LEVEMIR [Concomitant]
     Active Substance: INSULIN DETEMIR
  9. IPRATROPIUM BROMIDE [Concomitant]
     Active Substance: IPRATROPIUM BROMIDE
  10. SINGULAIR [Concomitant]
     Active Substance: MONTELUKAST SODIUM
  11. CIPROFLOXACIN HYDROCHLORIDE [Concomitant]
     Active Substance: CIPROFLOXACIN HYDROCHLORIDE
  12. ALLEGRA [Concomitant]
     Active Substance: FEXOFENADINE HYDROCHLORIDE
  13. MOMETASONE FUROATE [Concomitant]
     Active Substance: MOMETASONE FUROATE
  14. SODIUM CHLORIDE [Concomitant]
     Active Substance: SODIUM CHLORIDE
  15. METHENAMINE [Concomitant]
     Active Substance: METHENAMINE
  16. TRAZODONE HYDROCHLORIDE [Concomitant]
     Active Substance: TRAZODONE HYDROCHLORIDE
  17. VITAMIN D3 [Concomitant]
     Active Substance: CHOLECALCIFEROL
  18. MELATONIN [Concomitant]
     Active Substance: MELATONIN
  19. PEPCID [Concomitant]
     Active Substance: FAMOTIDINE
  20. GABAPENTIN [Concomitant]
     Active Substance: GABAPENTIN
  21. ATROVENT [Concomitant]
     Active Substance: IPRATROPIUM BROMIDE
  22. ALBUTEROL SULFATE [Concomitant]
     Active Substance: ALBUTEROL SULFATE
  23. ROBINUL [Concomitant]
     Active Substance: GLYCOPYRROLATE
  24. IMODIUM A-D [Concomitant]
     Active Substance: LOPERAMIDE HYDROCHLORIDE
  25. NIZORAL [Concomitant]
     Active Substance: KETOCONAZOLE
  26. BIFIDOBACTERIUM ANIMALIS LACTIS [Concomitant]
     Active Substance: BIFIDOBACTERIUM ANIMALIS LACTIS
  27. GLUCAGON [Concomitant]
     Active Substance: GLUCAGON

REACTIONS (2)
  - Dependence on respirator [Unknown]
  - Off label use [Unknown]
